FAERS Safety Report 10736485 (Version 1)
Quarter: 2015Q1

REPORT INFORMATION
  Report Type: Spontaneous
  Country: US (occurrence: None)
  Receive Date: 20150123
  Receipt Date: 20150123
  Transmission Date: 20150721
  Serious: Yes (Other)
  Sender: FDA-Public Use
  Company Number: None

PATIENT
  Age: 35 Year
  Sex: Female
  Weight: 47.7 kg

DRUGS (14)
  1. ANTI-THYMOCYTE GLOBULIN (RABBIT) NOS [Suspect]
     Active Substance: LAPINE T-LYMPHOCYTE IMMUNE GLOBULIN
     Indication: PROPHYLAXIS
     Route: 042
     Dates: start: 20141204, end: 20141207
  2. ANTI-THYMOCYTE GLOBULIN (RABBIT) NOS [Suspect]
     Active Substance: LAPINE T-LYMPHOCYTE IMMUNE GLOBULIN
     Indication: KIDNEY TRANSPLANT REJECTION
     Route: 042
     Dates: start: 20141204, end: 20141207
  3. HYDROCORTISONE. [Concomitant]
     Active Substance: HYDROCORTISONE
  4. SULFAMETHOXAZOLE/TRIMETHOPRIM [Concomitant]
     Active Substance: SULFAMETHOXAZOLE\TRIMETHOPRIM
  5. ACETAMINOPHEN. [Concomitant]
     Active Substance: ACETAMINOPHEN
  6. DIPHENHYDRAMINE [Concomitant]
     Active Substance: DIPHENHYDRAMINE
  7. PREDNISONE. [Concomitant]
     Active Substance: PREDNISONE
  8. TACROLIMUS. [Concomitant]
     Active Substance: TACROLIMUS
  9. CLOTRIMAZOLE TROCHE [Concomitant]
     Active Substance: CLOTRIMAZOLE
  10. PANTOPRAZOLE [Concomitant]
     Active Substance: PANTOPRAZOLE SODIUM
  11. CLONIDINE. [Concomitant]
     Active Substance: CLONIDINE
  12. METHYLPREDNISOLONE. [Concomitant]
     Active Substance: METHYLPREDNISOLONE
  13. NIFEDIPINE XL [Concomitant]
     Active Substance: NIFEDIPINE
  14. DOCUSATE [Concomitant]
     Active Substance: DOCUSATE

REACTIONS (5)
  - Tachycardia [None]
  - Infusion related reaction [None]
  - Fatigue [None]
  - Headache [None]
  - Dizziness [None]

NARRATIVE: CASE EVENT DATE: 20141207
